FAERS Safety Report 4595324-1 (Version None)
Quarter: 2005Q1

REPORT INFORMATION
  Report Type: 
  Country: None (occurrence: None)
  Receive Date: 20050223
  Receipt Date: 20050210
  Transmission Date: 20050727
  Serious: Yes (Hospitalization)
  Sender: FDA-Public Use
  Company Number: 2005CG00276

PATIENT
  Age: 91 Year
  Sex: Female

DRUGS (6)
  1. OMEPRAZOLE [Suspect]
     Dosage: 20 MG QD PO
     Route: 048
     Dates: end: 20050114
  2. RENITEC [Suspect]
     Dosage: 5  MG BID PO
     Route: 048
     Dates: end: 20050114
  3. TRIAMTERENE AND HYDROCHLOROTHIAZIDE [Suspect]
     Dosage: 1 DF QD PO
     Route: 048
  4. XANAX [Suspect]
  5. MONICOR L.P. [Suspect]
     Dosage: 20 MG BID PO
     Route: 048
  6. SERMION [Suspect]
     Dosage: 10 MG TID PO
     Route: 048

REACTIONS (2)
  - PEMPHIGOID [None]
  - THERAPY NON-RESPONDER [None]
